FAERS Safety Report 8917521 (Version 2)
Quarter: 2014Q1

REPORT INFORMATION
  Report Type: Spontaneous
  Country: CO (occurrence: CO)
  Receive Date: 20121120
  Receipt Date: 20140214
  Transmission Date: 20141002
  Serious: Yes (Hospitalization, Other)
  Sender: FDA-Public Use
  Company Number: CO-PFIZER INC-2012289798

PATIENT
  Age: 54 Year
  Sex: Female

DRUGS (2)
  1. XALACOM [Suspect]
     Indication: INTRAOCULAR PRESSURE TEST
     Dosage: 50MG/2.5ML, 1X/DAY
     Route: 048
     Dates: start: 1998
  2. LIPITOR [Suspect]
     Dosage: 20 MG, UNK

REACTIONS (7)
  - Multiple sclerosis [Unknown]
  - Cerebral ischaemia [Recovered/Resolved with Sequelae]
  - Gait disturbance [Not Recovered/Not Resolved]
  - Spinal disorder [Not Recovered/Not Resolved]
  - Speech disorder [Not Recovered/Not Resolved]
  - Muscular weakness [Not Recovered/Not Resolved]
  - Off label use [Not Recovered/Not Resolved]
